FAERS Safety Report 8869211 (Version 1)
Quarter: 2012Q4

REPORT INFORMATION
  Report Type: Spontaneous
  Country: NZ (occurrence: None)
  Receive Date: 20121022
  Receipt Date: 20121022
  Transmission Date: 20130627
  Serious: Yes (Other)
  Sender: FDA-Public Use
  Company Number: VAL_00931_2012

PATIENT
  Age: 86 Year
  Sex: Male

DRUGS (5)
  1. METOPROLOL [Suspect]
     Dosage: (DF)
  2. DONEPEZIL (DONEPEZIL) [Suspect]
     Dosage: (DF Oral)
  3. CITALOPRAM [Concomitant]
  4. GLIPIZIDE [Concomitant]
  5. COLECALCIFEROL [Concomitant]

REACTIONS (3)
  - Bradycardia [None]
  - Drug interaction [None]
  - Syncope [None]
